FAERS Safety Report 25619987 (Version 1)
Quarter: 2025Q3

REPORT INFORMATION
  Report Type: Spontaneous
  Country: US (occurrence: US)
  Receive Date: 20250730
  Receipt Date: 20250730
  Transmission Date: 20251020
  Serious: Yes (Death, Other)
  Sender: BAXTER
  Company Number: US-BAXTER-2025BAX018701

PATIENT
  Age: 62 Year
  Sex: Female

DRUGS (1)
  1. REGADENOSON [Suspect]
     Active Substance: REGADENOSON
     Indication: Cardiac stress test
     Route: 042

REACTIONS (10)
  - Electrocardiogram ST segment elevation [Fatal]
  - Coronary artery occlusion [Fatal]
  - Vascular stent stenosis [Fatal]
  - Coronary vascular graft occlusion [Fatal]
  - Coronary artery disease [Fatal]
  - Cardiogenic shock [Fatal]
  - Cardiac arrest [Fatal]
  - Ventricular fibrillation [Fatal]
  - Electrocardiogram ST segment depression [Fatal]
  - Chest pain [Fatal]
